FAERS Safety Report 9938414 (Version 2)
Quarter: 2014Q1

REPORT INFORMATION
  Report Type: Report from Study
  Country: US (occurrence: US)
  Receive Date: 20140303
  Receipt Date: 20140303
  Transmission Date: 20141002
  Serious: No
  Sender: FDA-Public Use
  Company Number: US-ABBVIE-08P-163-0460081-00

PATIENT
  Age: 35 Year
  Sex: Female

DRUGS (11)
  1. HUMIRA 40 MG/ 0.8 ML PRE-FILLED SYRINGE [Suspect]
     Indication: PSORIATIC ARTHROPATHY
     Route: 058
     Dates: start: 20080613
  2. HUMIRA 40 MG/ 0.8 ML PRE-FILLED SYRINGE [Suspect]
     Indication: PSORIATIC ARTHROPATHY
     Route: 058
     Dates: start: 2004, end: 2006
  3. HUMIRA 40 MG/ 0.8 ML PRE-FILLED SYRINGE [Suspect]
     Indication: ANKYLOSING SPONDYLITIS
  4. MOBIC [Concomitant]
     Indication: ARTHRALGIA
  5. METHOTREXATE [Concomitant]
     Indication: PSORIATIC ARTHROPATHY
  6. METHOTREXATE [Concomitant]
     Indication: ANKYLOSING SPONDYLITIS
  7. PREDNISONE [Concomitant]
     Indication: PSORIATIC ARTHROPATHY
  8. FOLIC ACID [Concomitant]
     Indication: DRUG THERAPY
  9. VICODIN [Concomitant]
     Indication: BREAKTHROUGH PAIN
  10. LYRICA [Concomitant]
     Indication: ANKYLOSING SPONDYLITIS
  11. LYRICA [Concomitant]
     Indication: MIGRAINE

REACTIONS (8)
  - Migraine [Not Recovered/Not Resolved]
  - Neurological symptom [Not Recovered/Not Resolved]
  - Complicated migraine [Recovering/Resolving]
  - Back pain [Not Recovered/Not Resolved]
  - Pain in extremity [Not Recovered/Not Resolved]
  - Insomnia [Not Recovered/Not Resolved]
  - Diarrhoea [Not Recovered/Not Resolved]
  - Muscular weakness [Recovering/Resolving]
